FAERS Safety Report 19737685 (Version 5)
Quarter: 2022Q3

REPORT INFORMATION
  Report Type: Spontaneous
  Country: US (occurrence: US)
  Receive Date: 20210823
  Receipt Date: 20220625
  Transmission Date: 20221026
  Serious: No
  Sender: FDA-Public Use
  Company Number: NVSC2021US184960

PATIENT
  Sex: Male

DRUGS (1)
  1. COSENTYX [Suspect]
     Active Substance: SECUKINUMAB
     Indication: Product used for unknown indication
     Dosage: 150 MG, QW
     Route: 065

REACTIONS (2)
  - Needle issue [Unknown]
  - Incorrect dose administered [Unknown]
